FAERS Safety Report 19096582 (Version 1)
Quarter: 2021Q2

REPORT INFORMATION
  Report Type: Spontaneous
  Country: US (occurrence: US)
  Receive Date: 20210405
  Receipt Date: 20210405
  Transmission Date: 20210717
  Serious: Yes (Hospitalization)
  Sender: FDA-Public Use
  Company Number: None

PATIENT
  Age: 57 Year
  Sex: Female
  Weight: 47.25 kg

DRUGS (5)
  1. FENTANYL. [Suspect]
     Active Substance: FENTANYL
     Indication: NEURALGIA
     Dosage: ?          OTHER FREQUENCY:EVERY TWO DAYS;?
     Route: 061
  2. XANOFLEX [Concomitant]
  3. BACLOFEN. [Concomitant]
     Active Substance: BACLOFEN
  4. KEPPRA [Concomitant]
     Active Substance: LEVETIRACETAM
  5. DIAZEPAM. [Concomitant]
     Active Substance: DIAZEPAM

REACTIONS (1)
  - Suicidal ideation [None]

NARRATIVE: CASE EVENT DATE: 20210329
